FAERS Safety Report 18861401 (Version 2)
Quarter: 2021Q1

REPORT INFORMATION
  Report Type: Spontaneous
  Country: FR (occurrence: FR)
  Receive Date: 20210209
  Receipt Date: 20210225
  Transmission Date: 20210420
  Serious: Yes (Hospitalization, Other)
  Sender: FDA-Public Use
  Company Number: FR-AMGEN-FRASP2021019578

PATIENT
  Age: 21 Year
  Sex: Male

DRUGS (10)
  1. BLINCYTO [Suspect]
     Active Substance: BLINATUMOMAB
     Dosage: UNK
     Route: 042
  2. BLINCYTO [Suspect]
     Active Substance: BLINATUMOMAB
     Dosage: UNK
     Route: 042
     Dates: start: 20200504
  3. BLINCYTO [Suspect]
     Active Substance: BLINATUMOMAB
     Indication: B PRECURSOR TYPE ACUTE LEUKAEMIA
     Dosage: UNK
     Route: 042
     Dates: start: 2019, end: 20200305
  4. BLINCYTO [Suspect]
     Active Substance: BLINATUMOMAB
     Dosage: UNK
     Route: 042
  5. ETOPOSIDE. [Concomitant]
     Active Substance: ETOPOSIDE
     Dosage: UNK
  6. ASPARAGINASE [Concomitant]
     Active Substance: ASPARAGINASE
     Dosage: UNK
  7. BLINCYTO [Suspect]
     Active Substance: BLINATUMOMAB
     Dosage: UNK
     Route: 042
  8. DEXAMETHASONE. [Concomitant]
     Active Substance: DEXAMETHASONE
  9. MITOXANTRON [MITOXANTRONE] [Concomitant]
     Active Substance: MITOXANTRONE HYDROCHLORIDE
  10. BLINCYTO [Suspect]
     Active Substance: BLINATUMOMAB
     Dosage: UNK
     Route: 042

REACTIONS (1)
  - Acute lymphocytic leukaemia recurrent [Unknown]

NARRATIVE: CASE EVENT DATE: 20201215
